FAERS Safety Report 4714095-9 (Version None)
Quarter: 2005Q3

REPORT INFORMATION
  Report Type: 
  Country: None (occurrence: None)
  Receive Date: 20050712
  Receipt Date: 20050624
  Transmission Date: 20060218
  Serious: Yes (Life-Threatening, Hospitalization, Disabling)
  Sender: FDA-Public Use
  Company Number: GBS050417264

PATIENT
  Age: 46 Year
  Sex: Female

DRUGS (14)
  1. XIGRIS [Suspect]
     Indication: SEPSIS
     Dosage: 24 UG/KG/HR
     Dates: start: 20041204, end: 20041208
  2. SUXAMETHONIUM [Concomitant]
  3. MIDAZOLAM HYDROCHLORIDE [Concomitant]
  4. AMIODARONE [Concomitant]
  5. NORADRENALINE [Concomitant]
  6. DOPEXAMINE [Concomitant]
  7. FENTANYL [Concomitant]
  8. CLARITHROMYCIN [Concomitant]
  9. CEFOTAXIME [Concomitant]
  10. BENZYLPENICILLIN [Concomitant]
  11. FRUSEMIDE [Concomitant]
  12. HYDROCORTISONE (HYDROCORTISONE /00028601/) [Concomitant]
  13. FLOLAN (EPOPROSTENOL) [Concomitant]
  14. ADRENALINE [Concomitant]

REACTIONS (6)
  - BLOOD SODIUM DECREASED [None]
  - CEREBRAL HAEMORRHAGE [None]
  - HEMIPARESIS [None]
  - NERVOUS SYSTEM DISORDER [None]
  - SEDATION [None]
  - THROMBOCYTOPENIA [None]
